FAERS Safety Report 10680911 (Version 1)
Quarter: 2014Q4

REPORT INFORMATION
  Report Type: Report from Study
  Country: DE (occurrence: DE)
  Receive Date: 20141229
  Receipt Date: 20141229
  Transmission Date: 20150529
  Serious: Yes (Other)
  Sender: FDA-Public Use
  Company Number: DE-ABBVIE-14K-062-1325310-00

PATIENT
  Sex: Female

DRUGS (1)
  1. HUMIRA [Suspect]
     Active Substance: ADALIMUMAB
     Indication: RHEUMATOID ARTHRITIS
     Route: 058
     Dates: start: 20070701

REACTIONS (5)
  - Abasia [Unknown]
  - Muscle atrophy [Not Recovered/Not Resolved]
  - Dyspnoea [Unknown]
  - Myositis [Not Recovered/Not Resolved]
  - Posture abnormal [Unknown]

NARRATIVE: CASE EVENT DATE: 2010
